FAERS Safety Report 8245369-5 (Version None)
Quarter: 2012Q1

REPORT INFORMATION
  Report Type: 
  Country: None (occurrence: None)
  Receive Date: 20120329
  Receipt Date: 20120319
  Transmission Date: 20120608
  Serious: Yes (Hospitalization)
  Sender: FDA-Public Use
  Company Number: JP-ALLERGAN-1202850US

PATIENT
  Age: 15 Year
  Sex: Male

DRUGS (7)
  1. MYSTAN [Concomitant]
     Dosage: UNK
     Dates: start: 20080123
  2. VALPROATE SODIUM [Concomitant]
     Indication: PRODUCT USED FOR UNKNOWN INDICATION
     Dosage: UNK
  3. BOTOX [Suspect]
     Indication: MUSCLE TIGHTNESS
     Dosage: 100 UNITS, SINGLE
     Route: 030
     Dates: start: 20111001, end: 20111001
  4. ZONISAMIDE [Concomitant]
     Indication: PRODUCT USED FOR UNKNOWN INDICATION
  5. METLIGINE [Concomitant]
     Indication: PRODUCT USED FOR UNKNOWN INDICATION
  6. BOTOX [Suspect]
     Dosage: UNK
  7. FERROMIA                           /00023516/ [Concomitant]
     Indication: PRODUCT USED FOR UNKNOWN INDICATION
     Dosage: UNK
     Dates: start: 20111108

REACTIONS (8)
  - C-REACTIVE PROTEIN INCREASED [None]
  - BRONCHITIS [None]
  - OXYGEN SATURATION DECREASED [None]
  - CYANOSIS [None]
  - ACUTE RESPIRATORY FAILURE [None]
  - LARYNGEAL STENOSIS [None]
  - LARYNGEAL ERYTHEMA [None]
  - DYSPNOEA [None]
